FAERS Safety Report 14026274 (Version 1)
Quarter: 2017Q3

REPORT INFORMATION
  Report Type: Spontaneous
  Country: US (occurrence: US)
  Receive Date: 20170929
  Receipt Date: 20170929
  Transmission Date: 20171128
  Serious: No
  Sender: FDA-Public Use
  Company Number: US-009507513-1709USA001877

PATIENT
  Age: 38 Year
  Sex: Female

DRUGS (6)
  1. HEXADROL [Suspect]
     Active Substance: DEXAMETHASONE
     Dosage: 6.25 MG/M2/DAY, DAY 6
  2. HEXADROL [Suspect]
     Active Substance: DEXAMETHASONE
     Dosage: 12.5 MG/M2/DAY, DAY 7-10
  3. HEXADROL [Suspect]
     Active Substance: DEXAMETHASONE
     Dosage: 10 MG/M2/DAY, DAY 11-13
  4. HEXADROL [Suspect]
     Active Substance: DEXAMETHASONE
     Dosage: 12.5 MG/M2/DAY, DAY 24
  5. HEXADROL [Suspect]
     Active Substance: DEXAMETHASONE
     Dosage: 25 MG/M2/DAY, DAY 14-23
  6. HEXADROL [Suspect]
     Active Substance: DEXAMETHASONE
     Indication: HISTIOCYTOSIS HAEMATOPHAGIC
     Dosage: 10 MG/M2/DAY, DAY 2-5

REACTIONS (1)
  - Therapy non-responder [Unknown]
